FAERS Safety Report 6343840-4 (Version None)
Quarter: 2009Q3

REPORT INFORMATION
  Report Type: 
  Country: None (occurrence: None)
  Receive Date: 20090908
  Receipt Date: 20090831
  Transmission Date: 20100115
  Serious: Yes (Hospitalization)
  Sender: FDA-Public Use
  Company Number: PHHO2009JP05976

PATIENT
  Sex: Female
  Weight: 43 kg

DRUGS (4)
  1. EXELON [Suspect]
     Indication: DEMENTIA ALZHEIMER'S TYPE
     Dosage: 2.5CM^2
     Route: 062
     Dates: start: 20090314, end: 20090410
  2. EXELON [Suspect]
     Dosage: 5CM^2
     Route: 062
     Dates: start: 20090411, end: 20090511
  3. BLOPRESS [Concomitant]
     Indication: HYPERTENSION
     Dosage: 8 MG, UNK
     Route: 048
     Dates: start: 20081027
  4. NORVASC [Concomitant]
     Indication: HYPERTENSION
     Dosage: 2.5 MG, UNK
     Dates: start: 20081027

REACTIONS (5)
  - FALL [None]
  - FEMUR FRACTURE [None]
  - INCONTINENCE [None]
  - PAIN IN EXTREMITY [None]
  - SURGERY [None]
